FAERS Safety Report 19676972 (Version 1)
Quarter: 2021Q3

REPORT INFORMATION
  Report Type: Spontaneous
  Country: US (occurrence: US)
  Receive Date: 20210809
  Receipt Date: 20210809
  Transmission Date: 20211014
  Serious: Yes (Other)
  Sender: FDA-Public Use
  Company Number: US-PFIZER INC-202100958105

PATIENT
  Age: 62 Year
  Sex: Female

DRUGS (2)
  1. XELJANZ [Suspect]
     Active Substance: TOFACITINIB CITRATE
     Dosage: 5 MG
  2. TYMLOS [Suspect]
     Active Substance: ABALOPARATIDE
     Dosage: 80 UG, 1X/DAY
     Route: 058

REACTIONS (2)
  - Eye infection [Unknown]
  - Immune system disorder [Unknown]
